FAERS Safety Report 22380128 (Version 1)
Quarter: 2023Q2

REPORT INFORMATION
  Report Type: Spontaneous
  Country: CA (occurrence: CA)
  Receive Date: 20230529
  Receipt Date: 20230529
  Transmission Date: 20230722
  Serious: Yes (Death, Hospitalization)
  Sender: FDA-Public Use
  Company Number: CA-HLS-202301152

PATIENT
  Age: 17 Year

DRUGS (1)
  1. CLOZAPINE [Suspect]
     Active Substance: CLOZAPINE
     Indication: Constipation
     Dosage: TABLETS DOSAGE FORM
     Route: 065

REACTIONS (5)
  - Confusional state [Fatal]
  - Death [Fatal]
  - Delirium [Fatal]
  - Hypoglycaemia [Fatal]
  - Product use in unapproved indication [Fatal]
